FAERS Safety Report 21958686 (Version 1)
Quarter: 2023Q1

REPORT INFORMATION
  Report Type: Spontaneous
  Country: CH (occurrence: None)
  Receive Date: 20230206
  Receipt Date: 20230206
  Transmission Date: 20230418
  Serious: Yes (Other)
  Sender: FDA-Public Use
  Company Number: CH-ROCHE-3277473

PATIENT
  Sex: Male

DRUGS (12)
  1. AVASTIN [Suspect]
     Active Substance: BEVACIZUMAB
     Indication: Colorectal adenocarcinoma
     Route: 065
     Dates: start: 20190522, end: 20190731
  2. CAPECITABINE [Suspect]
     Active Substance: CAPECITABINE
     Indication: Colorectal adenocarcinoma
     Route: 065
     Dates: start: 20170301, end: 20170404
  3. FLUOROURACIL\LEUCOVORIN CALCIUM\OXALIPLATIN [Suspect]
     Active Substance: FLUOROURACIL\LEUCOVORIN CALCIUM\OXALIPLATIN
     Indication: Colorectal adenocarcinoma
     Route: 065
     Dates: start: 20170717, end: 20171024
  4. FLUOROURACIL\IRINOTECAN\LEUCOVORIN [Suspect]
     Active Substance: FLUOROURACIL\IRINOTECAN\LEUCOVORIN
     Indication: Colorectal adenocarcinoma
     Route: 065
     Dates: start: 20180620, end: 20181205
  5. FLUOROURACIL\IRINOTECAN\LEUCOVORIN [Suspect]
     Active Substance: FLUOROURACIL\IRINOTECAN\LEUCOVORIN
     Route: 065
     Dates: start: 20190522, end: 20190731
  6. FLUOROURACIL\IRINOTECAN\LEUCOVORIN [Suspect]
     Active Substance: FLUOROURACIL\IRINOTECAN\LEUCOVORIN
     Route: 065
     Dates: start: 20200928, end: 20210315
  7. CETUXIMAB [Suspect]
     Active Substance: CETUXIMAB
     Indication: Colorectal adenocarcinoma
     Route: 065
     Dates: start: 20180620, end: 20181205
  8. CETUXIMAB [Suspect]
     Active Substance: CETUXIMAB
     Route: 065
     Dates: start: 20200928, end: 20210315
  9. CETUXIMAB [Suspect]
     Active Substance: CETUXIMAB
     Route: 065
     Dates: start: 20210315, end: 20210802
  10. LONSURF [Suspect]
     Active Substance: TIPIRACIL HYDROCHLORIDE\TRIFLURIDINE
     Indication: Colorectal adenocarcinoma
     Route: 065
     Dates: start: 20200607, end: 20200907
  11. FLUOROURACIL [Suspect]
     Active Substance: FLUOROURACIL
     Indication: Colorectal adenocarcinoma
     Route: 065
     Dates: start: 20210315, end: 20210802
  12. IRINOTECAN [Suspect]
     Active Substance: IRINOTECAN
     Indication: Colorectal adenocarcinoma
     Route: 065
     Dates: start: 20210817, end: 20220209

REACTIONS (1)
  - Disease progression [Unknown]
